FAERS Safety Report 9643547 (Version 1)
Quarter: 2013Q4

REPORT INFORMATION
  Report Type: Spontaneous
  Country: IT (occurrence: IT)
  Receive Date: 20131024
  Receipt Date: 20131024
  Transmission Date: 20140711
  Serious: Yes (Hospitalization)
  Sender: FDA-Public Use
  Company Number: IT-BAYER-2013-129390

PATIENT
  Age: 31 Year
  Sex: Female
  Weight: 70 kg

DRUGS (1)
  1. YAZ [Suspect]
     Dosage: DAILY DOSE 1 DF
     Route: 048
     Dates: start: 20130501, end: 20131014

REACTIONS (2)
  - Pulmonary embolism [Recovering/Resolving]
  - Fibrin D dimer increased [Recovering/Resolving]
